FAERS Safety Report 5317020-5 (Version None)
Quarter: 2007Q2

REPORT INFORMATION
  Report Type: 
  Country: None (occurrence: None)
  Receive Date: 20070504
  Receipt Date: 20070423
  Transmission Date: 20071010
  Serious: Yes (Other)
  Sender: FDA-Public Use
  Company Number: JP-PFIZER INC-2007035024

PATIENT
  Sex: Male

DRUGS (7)
  1. ZYRTEC [Suspect]
     Indication: DERMATITIS ATOPIC
     Route: 048
     Dates: start: 20050101, end: 20050701
  2. ZYRTEC [Suspect]
     Indication: COUGH
  3. SOMATROPIN [Suspect]
     Indication: PRADER-WILLI SYNDROME
     Dosage: DAILY DOSE:.4MG
     Route: 058
     Dates: start: 20020329, end: 20020509
  4. SOMATROPIN [Suspect]
     Dosage: DAILY DOSE:.5MG
     Route: 058
     Dates: start: 20020510, end: 20030403
  5. SOMATROPIN [Suspect]
     Dosage: DAILY DOSE:.6MG
     Route: 058
     Dates: start: 20030404, end: 20040611
  6. SOMATROPIN [Suspect]
     Dosage: DAILY DOSE:.7MG
     Route: 058
     Dates: start: 20040611, end: 20041216
  7. SOMATROPIN [Suspect]
     Route: 058

REACTIONS (1)
  - LOSS OF CONSCIOUSNESS [None]
